FAERS Safety Report 25566944 (Version 1)
Quarter: 2025Q3

REPORT INFORMATION
  Report Type: Spontaneous
  Country: US (occurrence: None)
  Receive Date: 20250715
  Receipt Date: 20250715
  Transmission Date: 20251020
  Serious: Yes (Life-Threatening, Hospitalization)
  Sender: FDA-CTU
  Company Number: None

PATIENT
  Age: 63 Year
  Sex: Female

DRUGS (1)
  1. TIROSINT [Suspect]
     Active Substance: LEVOTHYROXINE SODIUM
     Indication: Thyroid disorder
     Dosage: FREQUENCY : DAILY;?
     Route: 048
     Dates: start: 20240305, end: 20250708

REACTIONS (12)
  - Vertigo [None]
  - Blood pressure increased [None]
  - Therapy cessation [None]
  - Pain in extremity [None]
  - Blood glucose increased [None]
  - Contusion [None]
  - Contusion [None]
  - Alopecia [None]
  - Vomiting [None]
  - Headache [None]
  - Thirst [None]
  - Memory impairment [None]

NARRATIVE: CASE EVENT DATE: 20240612
